FAERS Safety Report 9233104 (Version 1)
Quarter: 2013Q2

REPORT INFORMATION
  Report Type: Spontaneous
  Country: IT (occurrence: IT)
  Receive Date: 20130416
  Receipt Date: 20130416
  Transmission Date: 20140414
  Serious: Yes (Other)
  Sender: FDA-Public Use
  Company Number: PHHY2013IT036517

PATIENT
  Sex: Female

DRUGS (2)
  1. ZOMETA [Suspect]
     Indication: LUMBAR VERTEBRAL FRACTURE
     Dosage: 1 DF, MONTHLY
     Route: 042
     Dates: start: 20100501, end: 20110201
  2. DELTACORTENE [Concomitant]
     Indication: THROMBOCYTOPENIA
     Dosage: 70 MG, UNK

REACTIONS (1)
  - Osteonecrosis of jaw [Recovered/Resolved with Sequelae]
